FAERS Safety Report 25255132 (Version 3)
Quarter: 2025Q3

REPORT INFORMATION
  Report Type: Report from Study
  Country: CA (occurrence: CA)
  Receive Date: 20250430
  Receipt Date: 20250711
  Transmission Date: 20251021
  Serious: Yes (Hospitalization, Disabling)
  Sender: EISAI
  Company Number: CA-Eisai-EC-2025-188063

PATIENT
  Age: 75 Year
  Sex: Male

DRUGS (6)
  1. DONEPEZIL [Suspect]
     Active Substance: DONEPEZIL
     Indication: Dementia Alzheimer^s type
     Dates: start: 202304, end: 202409
  2. DONEPEZIL [Suspect]
     Active Substance: DONEPEZIL
     Dates: start: 202409, end: 202412
  3. INVESTIGATIONAL PRODUCT [Suspect]
     Active Substance: INVESTIGATIONAL PRODUCT
     Indication: Immunisation
     Dates: start: 20240319, end: 20240319
  4. CITALOPRAM [Concomitant]
     Active Substance: CITALOPRAM
     Indication: Dementia Alzheimer^s type
  5. LISINOPRIL [Concomitant]
     Active Substance: LISINOPRIL
  6. OZEMPIC [Concomitant]
     Active Substance: SEMAGLUTIDE

REACTIONS (1)
  - Dementia Alzheimer^s type [Not Recovered/Not Resolved]

NARRATIVE: CASE EVENT DATE: 20240901
